FAERS Safety Report 14381683 (Version 1)
Quarter: 2018Q1

REPORT INFORMATION
  Report Type: Spontaneous
  Country: US (occurrence: US)
  Receive Date: 20180112
  Receipt Date: 20180112
  Transmission Date: 20180509
  Serious: No
  Sender: FDA-Public Use
  Company Number: US-009507513-1712USA009291

PATIENT
  Age: 67 Year
  Sex: Male

DRUGS (2)
  1. BELSOMRA [Suspect]
     Active Substance: SUVOREXANT
     Dosage: 1 TABLET NIGHTLY, 30 MINUTES BEFORE BED
     Route: 048
     Dates: start: 20171213, end: 20171215
  2. BELSOMRA [Suspect]
     Active Substance: SUVOREXANT
     Indication: INSOMNIA
     Dosage: UNK
     Route: 048

REACTIONS (2)
  - Drug ineffective [Recovering/Resolving]
  - Middle insomnia [Recovering/Resolving]

NARRATIVE: CASE EVENT DATE: 201712
